APPROVED DRUG PRODUCT: PRAVIGARD PAC (COPACKAGED)
Active Ingredient: ASPIRIN; PRAVASTATIN SODIUM
Strength: 81MG;40MG
Dosage Form/Route: TABLET;ORAL
Application: N021387 | Product #002
Applicant: BRISTOL MYERS SQUIBB CO
Approved: Jun 24, 2003 | RLD: No | RS: No | Type: DISCN